FAERS Safety Report 9621308 (Version 1)
Quarter: 2013Q4

REPORT INFORMATION
  Report Type: Spontaneous
  Country: US (occurrence: None)
  Receive Date: 20131011
  Receipt Date: 20131011
  Transmission Date: 20140711
  Serious: Yes (Other)
  Sender: FDA-Public Use
  Company Number: None

PATIENT
  Age: 58 Year
  Sex: Male
  Weight: 115 kg

DRUGS (15)
  1. ZOLPIDEM [Suspect]
     Indication: SEDATION
     Dates: start: 20131009
  2. ALLOPURINOL [Concomitant]
  3. AUGMENTIN [Concomitant]
  4. CLONAZEPAM [Concomitant]
  5. DIPHENHYDRAMINE [Concomitant]
  6. DIVALPROEX ER [Concomitant]
  7. DOCUSATE [Concomitant]
  8. GUAIFENESIN CR [Concomitant]
  9. HEPARIN [Concomitant]
  10. LACTOBACILLUS [Concomitant]
  11. METOPROLOL [Concomitant]
  12. OXYCODONE IR [Concomitant]
  13. PANTOPRAZOLE [Concomitant]
  14. QUETIAPINE [Concomitant]
  15. TRAMADOL [Concomitant]

REACTIONS (1)
  - Agitation [None]
